FAERS Safety Report 9296407 (Version 5)
Quarter: 2013Q3

REPORT INFORMATION
  Report Type: Spontaneous
  Country: JP (occurrence: JP)
  Receive Date: 20130517
  Receipt Date: 20130904
  Transmission Date: 20140515
  Serious: Yes (Hospitalization, Other)
  Sender: FDA-Public Use
  Company Number: JP-ABBOTT-13P-087-1090178-00

PATIENT
  Age: 64 Year
  Sex: Male
  Weight: 65 kg

DRUGS (21)
  1. HUMIRA [Suspect]
     Indication: RHEUMATOID ARTHRITIS
     Route: 058
     Dates: start: 20101020, end: 20121003
  2. METHOTREXATE [Concomitant]
     Indication: RHEUMATOID ARTHRITIS
     Route: 048
     Dates: start: 2003
  3. METHOTREXATE [Concomitant]
     Route: 048
  4. METHOTREXATE [Concomitant]
     Dates: start: 20090819, end: 20120730
  5. METHOTREXATE [Concomitant]
     Dates: start: 20120731, end: 20120827
  6. METHOTREXATE [Concomitant]
     Dates: start: 20120731, end: 20120827
  7. SALAZOSULFAPYRIDINE [Concomitant]
     Indication: RHEUMATOID ARTHRITIS
     Route: 048
     Dates: start: 2003, end: 201208
  8. SALAZOSULFAPYRIDINE [Concomitant]
     Route: 048
  9. SALAZOSULFAPYRIDINE [Concomitant]
     Route: 048
     Dates: start: 20090303, end: 20120911
  10. PREDNISOLONE [Concomitant]
     Indication: RHEUMATOID ARTHRITIS
     Route: 048
     Dates: start: 199406
  11. PREDNISOLONE [Concomitant]
     Dates: start: 20100922, end: 20111004
  12. PREDNISOLONE [Concomitant]
     Dates: start: 20111206, end: 20111226
  13. PREDNISOLONE [Concomitant]
     Dates: start: 20111227, end: 20120730
  14. PREDOHAN [Concomitant]
     Indication: RHEUMATOID ARTHRITIS
     Route: 048
     Dates: start: 20111005, end: 20111205
  15. OLMESARTAN MEDOXOMIL [Concomitant]
     Indication: HYPERTENSION
     Route: 048
     Dates: start: 20080317
  16. NIFEDIPINE [Concomitant]
     Indication: HYPERTENSION
     Route: 048
     Dates: start: 20090109
  17. METOPROLOL TARTRATE [Concomitant]
     Route: 048
     Dates: start: 20090916
  18. IRSOGLADINE MALEATE [Concomitant]
     Indication: GASTRITIS
     Route: 048
     Dates: start: 20091111
  19. DILAZEP [Concomitant]
     Indication: MYOCARDIAL ISCHAEMIA
     Route: 048
     Dates: start: 20090526
  20. LOXOPROFEN SODIUM [Concomitant]
     Indication: RHEUMATOID ARTHRITIS
     Route: 048
     Dates: start: 20100922, end: 20101023
  21. FOLIC ACID [Concomitant]
     Indication: PROPHYLAXIS
     Route: 048
     Dates: start: 20120731, end: 20120906

REACTIONS (7)
  - Autoimmune hepatitis [Recovered/Resolved]
  - Colitis ulcerative [Recovering/Resolving]
  - Arthritis [Unknown]
  - IgA nephropathy [Unknown]
  - Biliary cirrhosis primary [Unknown]
  - Occult blood positive [Unknown]
  - Non-alcoholic steatohepatitis [Unknown]
